FAERS Safety Report 25426687 (Version 1)
Quarter: 2025Q2

REPORT INFORMATION
  Report Type: Spontaneous
  Country: JP (occurrence: JP)
  Receive Date: 20250612
  Receipt Date: 20250612
  Transmission Date: 20250717
  Serious: Yes (Other)
  Sender: MERCK SHARP & DOHME LLC
  Company Number: JP-009507513-2294098

PATIENT
  Age: 53 Year
  Sex: Male

DRUGS (2)
  1. PEMBROLIZUMAB [Suspect]
     Active Substance: PEMBROLIZUMAB
     Indication: Bladder cancer
  2. PADCEV [Suspect]
     Active Substance: ENFORTUMAB VEDOTIN-EJFV
     Indication: Bladder cancer

REACTIONS (8)
  - Epididymitis [Unknown]
  - Alopecia [Unknown]
  - Pruritus [Unknown]
  - Dizziness [Unknown]
  - Therapy partial responder [Unknown]
  - Fatigue [Unknown]
  - Liver disorder [Unknown]
  - Taste disorder [Unknown]
